FAERS Safety Report 10469354 (Version 6)
Quarter: 2015Q1

REPORT INFORMATION
  Report Type: Report from Study
  Country: BR (occurrence: BR)
  Receive Date: 20140923
  Receipt Date: 20150211
  Transmission Date: 20150720
  Serious: Yes (Hospitalization, Other)
  Sender: FDA-Public Use
  Company Number: PHHY2014BR119289

PATIENT
  Age: 53 Year
  Sex: Female
  Weight: 65 kg

DRUGS (7)
  1. SANDOSTATIN LAR DEPOT [Suspect]
     Active Substance: OCTREOTIDE ACETATE
     Indication: ACROMEGALY
     Dosage: 20 MG, EVERY 28 DAYS
     Route: 065
  2. SANDOSTATIN LAR DEPOT [Suspect]
     Active Substance: OCTREOTIDE ACETATE
     Dosage: 30 MG, EVERY 28 DAYS
     Route: 065
     Dates: start: 2013, end: 201409
  3. SANDOSTATIN LAR DEPOT [Suspect]
     Active Substance: OCTREOTIDE ACETATE
     Dosage: 30 MG, EVERY 28 DAYS
     Route: 065
  4. SALINE [Concomitant]
     Active Substance: SODIUM CHLORIDE
     Route: 065
  5. CIPROFLOXACIN. [Suspect]
     Active Substance: CIPROFLOXACIN
     Indication: PRODUCT USED FOR UNKNOWN INDICATION
     Dosage: UNK
     Route: 065
  6. MULTI VITAMIN [Concomitant]
     Active Substance: VITAMINS
     Indication: PRODUCT USED FOR UNKNOWN INDICATION
     Route: 065
  7. OMEPRAZOLE. [Concomitant]
     Active Substance: OMEPRAZOLE
     Indication: GASTRITIS
     Dosage: 1 DF, QD
     Route: 065

REACTIONS (18)
  - Incarcerated hernia [Recovered/Resolved]
  - Needle issue [Not Recovered/Not Resolved]
  - Swelling [Recovering/Resolving]
  - Peripheral swelling [Unknown]
  - Gastrointestinal pain [Unknown]
  - Inappropriate schedule of drug administration [Unknown]
  - Inguinal hernia [Recovered/Resolved]
  - Pruritus generalised [Unknown]
  - Drug hypersensitivity [Unknown]
  - Eye swelling [Unknown]
  - Abdominal pain [Recovering/Resolving]
  - Weight increased [Recovering/Resolving]
  - Stress [Not Recovered/Not Resolved]
  - Suture rupture [Unknown]
  - Bone disorder [Not Recovered/Not Resolved]
  - Gastrointestinal disorder [Unknown]
  - Nervousness [Not Recovered/Not Resolved]
  - Emotional disorder [Unknown]

NARRATIVE: CASE EVENT DATE: 201409
